FAERS Safety Report 14690032 (Version 2)
Quarter: 2018Q2

REPORT INFORMATION
  Report Type: Spontaneous
  Country: US (occurrence: US)
  Receive Date: 20180328
  Receipt Date: 20180419
  Transmission Date: 20180711
  Serious: No
  Sender: FDA-Public Use
  Company Number: US-CELGENEUS-USA-20180309154

PATIENT
  Age: 44 Year
  Sex: Female

DRUGS (1)
  1. OTEZLA [Suspect]
     Active Substance: APREMILAST
     Indication: PSORIASIS
     Dosage: 60 MILLIGRAM
     Route: 048
     Dates: start: 20180219, end: 20180409

REACTIONS (4)
  - Pruritus [Unknown]
  - Feeling hot [Unknown]
  - Erythema [Recovered/Resolved]
  - Headache [Unknown]

NARRATIVE: CASE EVENT DATE: 201802
